FAERS Safety Report 16361140 (Version 1)
Quarter: 2019Q2

REPORT INFORMATION
  Report Type: Spontaneous
  Country: US (occurrence: US)
  Receive Date: 20190419
  Receipt Date: 20190419
  Transmission Date: 20190711
  Serious: No
  Sender: FDA-Public Use
  Company Number: None

PATIENT
  Age: 59 Year
  Sex: Male

DRUGS (1)
  1. COPAXONE [Suspect]
     Active Substance: GLATIRAMER ACETATE
     Dates: start: 20160322, end: 20190418

REACTIONS (2)
  - Injection site erythema [None]
  - Injection site pruritus [None]

NARRATIVE: CASE EVENT DATE: 20190418
